FAERS Safety Report 6373936-2 (Version None)
Quarter: 2009Q3

REPORT INFORMATION
  Report Type: 
  Country: None (occurrence: None)
  Receive Date: 20090924
  Receipt Date: 20090617
  Transmission Date: 20100115
  Serious: Yes (Hospitalization)
  Sender: FDA-Public Use
  Company Number: US-ASTRAZENECA-2009UW13422

PATIENT
  Age: 38 Year
  Sex: Female
  Weight: 55.8 kg

DRUGS (7)
  1. SEROQUEL [Suspect]
     Indication: BIPOLAR DISORDER
     Route: 048
     Dates: start: 20000101, end: 20040101
  2. SEROQUEL [Suspect]
     Indication: BIPOLAR I DISORDER
     Route: 048
     Dates: start: 20000101, end: 20040101
  3. DEXATRIM [Concomitant]
  4. GEODON [Concomitant]
     Dates: start: 20020101, end: 20030101
  5. NEURONTIN [Concomitant]
     Dates: start: 20000101, end: 20090101
  6. VALIUM [Concomitant]
     Dates: start: 20040101
  7. TRAZODONE [Concomitant]
     Dates: start: 20050101, end: 20070101

REACTIONS (1)
  - PANCREATITIS [None]
